FAERS Safety Report 13753296 (Version 1)
Quarter: 2017Q3

REPORT INFORMATION
  Report Type: Report from Study
  Country: None (occurrence: US)
  Receive Date: 20170714
  Receipt Date: 20170714
  Transmission Date: 20171127
  Serious: No
  Sender: FDA-Public Use
  Company Number: US-IPSEN BIOPHARMACEUTICALS, INC.-2013-0959

PATIENT
  Age: 10 Year
  Sex: Male
  Weight: 49.5 kg

DRUGS (7)
  1. INCRELEX [Suspect]
     Active Substance: MECASERMIN
     Route: 065
     Dates: start: 20111219, end: 20130317
  2. INCRELEX [Suspect]
     Active Substance: MECASERMIN
     Route: 065
     Dates: start: 20100825, end: 20110331
  3. INCRELEX [Suspect]
     Active Substance: MECASERMIN
     Route: 065
     Dates: start: 20110901, end: 20111218
  4. BRONCHODILATORS [Concomitant]
     Active Substance: UNSPECIFIED INGREDIENT
     Indication: PRODUCT USED FOR UNKNOWN INDICATION
     Dosage: NOT REPORTED
     Route: 065
  5. INCRELEX [Suspect]
     Active Substance: MECASERMIN
     Route: 065
     Dates: start: 20130318
  6. INCRELEX [Suspect]
     Active Substance: MECASERMIN
     Indication: PRIMARY INSULIN LIKE GROWTH FACTOR-1 DEFICIENCY
     Route: 065
     Dates: start: 20100301, end: 20100824
  7. INCRELEX [Suspect]
     Active Substance: MECASERMIN
     Route: 065
     Dates: start: 20110401, end: 20110831

REACTIONS (8)
  - Back pain [Unknown]
  - Snoring [Not Recovered/Not Resolved]
  - Arthralgia [Unknown]
  - Pharyngitis streptococcal [Unknown]
  - Dermatitis [Unknown]
  - Constipation [Unknown]
  - Scoliosis [Unknown]
  - Tonsillar hypertrophy [Unknown]

NARRATIVE: CASE EVENT DATE: 20100825
